FAERS Safety Report 11653793 (Version 3)
Quarter: 2015Q4

REPORT INFORMATION
  Report Type: Report from Study
  Country: BR (occurrence: BR)
  Receive Date: 20151022
  Receipt Date: 20151211
  Transmission Date: 20160304
  Serious: Yes (Hospitalization, Other)
  Sender: FDA-Public Use
  Company Number: PHHY2015BR134895

PATIENT
  Sex: Female
  Weight: 85 kg

DRUGS (1)
  1. ACLASTA [Suspect]
     Active Substance: ZOLEDRONIC ACID
     Indication: OSTEOPOROSIS
     Dosage: 1 DF (APPLICATION), Q12MO
     Route: 065

REACTIONS (6)
  - Rheumatic disorder [Recovering/Resolving]
  - Osteoarthritis [Recovering/Resolving]
  - Pain [Recovering/Resolving]
  - Memory impairment [Recovering/Resolving]
  - Dementia Alzheimer^s type [Recovering/Resolving]
  - Feeding disorder [Recovering/Resolving]
